FAERS Safety Report 21194192 (Version 2)
Quarter: 2022Q3

REPORT INFORMATION
  Report Type: Spontaneous
  Country: US (occurrence: US)
  Receive Date: 20220810
  Receipt Date: 20220919
  Transmission Date: 20221026
  Serious: No
  Sender: FDA-Public Use
  Company Number: US-BRISTOL-MYERS SQUIBB COMPANY-2022-086843

PATIENT
  Age: 66 Year
  Sex: Female

DRUGS (2)
  1. POMALYST [Suspect]
     Active Substance: POMALIDOMIDE
     Indication: Post procedural discomfort
     Dosage: EVERYDAY FOR 21DAYS
     Route: 048
     Dates: start: 20220616
  2. POMALYST [Suspect]
     Active Substance: POMALIDOMIDE
     Dosage: 21 DAYS ON, 7 DAYS OFF
     Route: 048

REACTIONS (1)
  - Intentional product use issue [Unknown]
